FAERS Safety Report 18256079 (Version 2)
Quarter: 2020Q4

REPORT INFORMATION
  Report Type: Report from Study
  Country: JP (occurrence: JP)
  Receive Date: 20200911
  Receipt Date: 20201111
  Transmission Date: 20210113
  Serious: Yes (Death, Life-Threatening, Hospitalization, Disabling, Other)
  Sender: FDA-Public Use
  Company Number: NVSJ2020JP008643

PATIENT
  Age: 65 Year
  Sex: Male

DRUGS (19)
  1. CONCENTRATED RED CELLS [Concomitant]
     Active Substance: HUMAN RED BLOOD CELL
     Indication: APLASTIC ANAEMIA
     Dosage: 840 ML
     Route: 042
     Dates: start: 20190204, end: 20190303
  2. PLATELETS [Concomitant]
     Active Substance: HUMAN PLATELET, ALLOGENIC
     Dosage: 1600 ML
     Route: 042
     Dates: start: 20190204, end: 20190303
  3. PLATELETS [Concomitant]
     Active Substance: HUMAN PLATELET, ALLOGENIC
     Dosage: 800 ML
     Route: 042
     Dates: start: 20190527, end: 20190623
  4. CONCENTRATED RED CELLS [Concomitant]
     Active Substance: HUMAN RED BLOOD CELL
     Dosage: 1120 ML
     Route: 042
     Dates: start: 20190429, end: 20190526
  5. CONCENTRATED RED CELLS [Concomitant]
     Active Substance: HUMAN RED BLOOD CELL
     Dosage: 1120 ML
     Route: 042
     Dates: start: 20190527, end: 20190623
  6. NEORAL [Suspect]
     Active Substance: CYCLOSPORINE
     Indication: APLASTIC ANAEMIA
     Dosage: 250 MG
     Route: 048
     Dates: start: 20190304, end: 20190807
  7. CONCENTRATED RED CELLS [Concomitant]
     Active Substance: HUMAN RED BLOOD CELL
     Dosage: 840 ML
     Route: 042
     Dates: start: 20190401, end: 20190428
  8. REVOLADE TAB [Suspect]
     Active Substance: ELTROMBOPAG
     Indication: APLASTIC ANAEMIA
     Dosage: 75 MG
     Route: 048
     Dates: start: 20190304, end: 20190324
  9. PLATELETS [Concomitant]
     Active Substance: HUMAN PLATELET, ALLOGENIC
     Dosage: 800 ML
     Route: 042
     Dates: start: 20190429, end: 20190526
  10. PRIMOBOLAN [Concomitant]
     Active Substance: METHENOLONE
     Indication: APLASTIC ANAEMIA
     Dosage: 20 MG
     Route: 048
     Dates: start: 20190304, end: 20190807
  11. PLATELETS [Concomitant]
     Active Substance: HUMAN PLATELET, ALLOGENIC
     Dosage: 1200 ML
     Route: 042
     Dates: start: 20190304, end: 20190331
  12. PLATELETS [Concomitant]
     Active Substance: HUMAN PLATELET, ALLOGENIC
     Dosage: 800 ML
     Route: 042
     Dates: start: 20190401, end: 20190428
  13. CONCENTRATED RED CELLS [Concomitant]
     Active Substance: HUMAN RED BLOOD CELL
     Dosage: 1120 ML
     Route: 042
     Dates: start: 20190304, end: 20190331
  14. CONCENTRATED RED CELLS [Concomitant]
     Active Substance: HUMAN RED BLOOD CELL
     Dosage: 2240 ML
     Route: 042
     Dates: start: 20190624, end: 20190721
  15. PLATELETS [Concomitant]
     Active Substance: HUMAN PLATELET, ALLOGENIC
     Indication: APLASTIC ANAEMIA
     Dosage: 900 ML
     Route: 042
     Dates: start: 20190107, end: 20190203
  16. REVOLADE TAB [Suspect]
     Active Substance: ELTROMBOPAG
     Dosage: 100 MG
     Route: 048
     Dates: start: 20190325, end: 20190807
  17. PLATELETS [Concomitant]
     Active Substance: HUMAN PLATELET, ALLOGENIC
     Dosage: 800 ML
     Route: 042
     Dates: start: 20190722, end: 20190818
  18. CONCENTRATED RED CELLS [Concomitant]
     Active Substance: HUMAN RED BLOOD CELL
     Dosage: 1120 ML
     Route: 042
     Dates: start: 20190722, end: 20190818
  19. PLATELETS [Concomitant]
     Active Substance: HUMAN PLATELET, ALLOGENIC
     Dosage: 1200 ML
     Route: 042
     Dates: start: 20190624, end: 20190721

REACTIONS (8)
  - Fatigue [Fatal]
  - Disease progression [Fatal]
  - Pyrexia [Fatal]
  - Platelet count decreased [Unknown]
  - Pneumonia [Fatal]
  - Liver disorder [Fatal]
  - Haemoglobin decreased [Unknown]
  - Aplastic anaemia [Fatal]

NARRATIVE: CASE EVENT DATE: 20190401
